FAERS Safety Report 10584544 (Version 1)
Quarter: 2014Q4

REPORT INFORMATION
  Report Type: Spontaneous
  Country: US (occurrence: None)
  Receive Date: 20141113
  Receipt Date: 20141113
  Transmission Date: 20150529
  Serious: No
  Sender: FDA-Public Use
  Company Number: None

PATIENT

DRUGS (1)
  1. 0.9% SODIUM CHLORIDE INJECTION USP [Suspect]
     Active Substance: SODIUM CHLORIDE
     Indication: PRODUCT QUALITY ISSUE
     Route: 042

REACTIONS (1)
  - Product outer packaging issue [None]

NARRATIVE: CASE EVENT DATE: 20141112
